FAERS Safety Report 5153183-2 (Version None)
Quarter: 2006Q4

REPORT INFORMATION
  Report Type: 
  Country: None (occurrence: None)
  Receive Date: 20061117
  Receipt Date: 20060117
  Transmission Date: 20070319
  Serious: Yes (Hospitalization, Other)
  Sender: FDA-Public Use
  Company Number: US-NOVOPROD-250195

PATIENT
  Sex: Female
  Weight: 83.9 kg

DRUGS (12)
  1. ACTIVELLA [Suspect]
     Indication: HORMONE REPLACEMENT THERAPY
     Dosage: UNKNOWN
     Route: 048
     Dates: start: 20030125, end: 20030617
  2. ASPIRIN [Concomitant]
     Indication: ANTICOAGULANT THERAPY
  3. ATENOLOL [Concomitant]
     Indication: HYPERTENSION
     Dosage: 100 MG, QD
  4. INDAPAMIDE [Concomitant]
     Indication: HYPERTENSION
     Dosage: 1.25 MG, QD
  5. ALTACE [Concomitant]
     Indication: HYPERTENSION
  6. NORVASC [Concomitant]
     Indication: HYPERTENSION
  7. ZOCOR [Concomitant]
     Indication: BLOOD CHOLESTEROL INCREASED
     Dosage: 20 MG, QD
  8. ALLOPURINOL [Concomitant]
     Indication: GOUT
  9. AMITRIPTYLIN [Concomitant]
     Indication: MIGRAINE
  10. PREVACID [Concomitant]
     Indication: OESOPHAGEAL PAIN
     Dates: start: 20060101
  11. IMITREX                            /01044801/ [Concomitant]
     Indication: MIGRAINE
     Dosage: 25 MG, PRN
  12. ANTIBIOTICS [Concomitant]
     Indication: DENTAL TREATMENT
     Dosage: UNK, PRN

REACTIONS (1)
  - BREAST CANCER IN SITU [None]
